FAERS Safety Report 16019134 (Version 1)
Quarter: 2019Q1

REPORT INFORMATION
  Report Type: Report from Study
  Country: GB (occurrence: GB)
  Receive Date: 20190228
  Receipt Date: 20190228
  Transmission Date: 20190418
  Serious: Yes (Other)
  Sender: FDA-Public Use
  Company Number: GB-TEVA-2019-GB-1017264

PATIENT
  Age: 9 Year
  Sex: Female

DRUGS (1)
  1. PREDNISOLONE. [Suspect]
     Active Substance: PREDNISOLONE
     Indication: AUTOIMMUNE PANCREATITIS
     Dosage: 1 MG/KG DAILY;
     Route: 048

REACTIONS (4)
  - Hyperglycaemia [Not Recovered/Not Resolved]
  - Hirsutism [Unknown]
  - Weight increased [Unknown]
  - Type 2 diabetes mellitus [Not Recovered/Not Resolved]
